FAERS Safety Report 9702829 (Version 2)
Quarter: 2013Q4

REPORT INFORMATION
  Report Type: Spontaneous
  Country: KZ (occurrence: KZ)
  Receive Date: 20131121
  Receipt Date: 20131202
  Transmission Date: 20140711
  Serious: Yes (Other)
  Sender: FDA-Public Use
  Company Number: KZ-GLAXOSMITHKLINE-B0946656A

PATIENT
  Age: 86 Year
  Sex: Male
  Weight: 72 kg

DRUGS (2)
  1. AVODART [Suspect]
     Indication: BENIGN PROSTATIC HYPERPLASIA
     Dosage: .5MG PER DAY
     Dates: start: 20120305, end: 20121030
  2. TAMSULOSIN [Concomitant]
     Indication: BENIGN PROSTATIC HYPERPLASIA
     Dates: start: 20120930, end: 20121030

REACTIONS (3)
  - Prostate cancer [Unknown]
  - Disease progression [Unknown]
  - Pollakiuria [Unknown]
